FAERS Safety Report 8609070-8 (Version None)
Quarter: 2012Q3

REPORT INFORMATION
  Report Type: 
  Country: None (occurrence: None)
  Receive Date: 20120821
  Receipt Date: 20120814
  Transmission Date: 20120928
  Serious: Yes (Death, Life-Threatening, Hospitalization, Other)
  Sender: FDA-Public Use
  Company Number: US-JNJFOC-20071003696

PATIENT
  Sex: Male
  Weight: 69 kg

DRUGS (15)
  1. HUMIRA [Suspect]
     Indication: COLITIS ULCERATIVE
     Dates: start: 20070615
  2. PURINETHOL [Suspect]
     Dosage: ALSO REPORTED WITH START DATE OF 01-OCT-1999
     Dates: start: 19990602
  3. REMICADE [Suspect]
     Indication: INFLAMMATORY BOWEL DISEASE
     Dosage: 19 INFUSIONS ADMINISTERED BETWEEN 10-JUL-2002 AND 7-MAR-2006
     Route: 042
     Dates: start: 20020710, end: 20060307
  4. PREDNISONE TAB [Concomitant]
     Indication: INFLAMMATORY BOWEL DISEASE
  5. REMICADE [Suspect]
     Indication: COLITIS ULCERATIVE
     Dosage: 19 INFUSIONS ADMINISTERED BETWEEN 10-JUL-2002 AND 7-MAR-2006
     Route: 042
     Dates: start: 20020710, end: 20060307
  6. ASACOL [Concomitant]
     Dates: start: 19981015
  7. PREDNISONE TAB [Concomitant]
     Indication: COLITIS ULCERATIVE
  8. HUMIRA [Suspect]
     Dates: start: 20070615
  9. PURINETHOL [Suspect]
     Dosage: ALSO REPORTED WITH START DATE OF 01-OCT-1999
     Dates: start: 19990602
  10. HUMIRA [Suspect]
     Dates: start: 20061101
  11. PURINETHOL [Suspect]
     Indication: INFLAMMATORY BOWEL DISEASE
     Dates: end: 20070401
  12. ASACOL [Concomitant]
     Dates: start: 20070305
  13. PURINETHOL [Suspect]
     Indication: COLITIS ULCERATIVE
     Dates: end: 20070401
  14. REMICADE [Suspect]
     Indication: CROHN'S DISEASE
     Dosage: 19 INFUSIONS ADMINISTERED BETWEEN 10-JUL-2002 AND 7-MAR-2006
     Route: 042
     Dates: start: 20020710, end: 20060307
  15. HUMIRA [Suspect]
     Indication: IRRITABLE BOWEL SYNDROME
     Dates: start: 20061101

REACTIONS (1)
  - HEPATOSPLENIC T-CELL LYMPHOMA [None]
